FAERS Safety Report 11508349 (Version 1)
Quarter: 2015Q3

REPORT INFORMATION
  Report Type: Spontaneous
  Country: US (occurrence: US)
  Receive Date: 20150903
  Receipt Date: 20150903
  Transmission Date: 20151125
  Serious: Yes (Hospitalization)
  Sender: FDA-Public Use
  Company Number: US-ELI_LILLY_AND_COMPANY-US200912001529

PATIENT
  Age: 71 Year
  Sex: Female

DRUGS (8)
  1. HUMALOG [Suspect]
     Active Substance: INSULIN LISPRO
     Indication: DIABETES MELLITUS
     Dosage: 10 U, EACH MORNING
     Route: 058
     Dates: start: 1991, end: 200910
  2. HUMALOG [Suspect]
     Active Substance: INSULIN LISPRO
     Dosage: 10 U, EACH MORNING
     Route: 058
     Dates: start: 1991, end: 200910
  3. HUMALOG [Suspect]
     Active Substance: INSULIN LISPRO
     Dosage: 7 U, DAILY (1/D)
     Route: 058
     Dates: start: 1991, end: 200910
  4. HUMALOG [Suspect]
     Active Substance: INSULIN LISPRO
     Dosage: 14 U, EACH EVENING
     Route: 058
     Dates: start: 1991, end: 200910
  5. HUMALOG [Suspect]
     Active Substance: INSULIN LISPRO
     Dosage: 14 U, EACH EVENING
     Route: 058
     Dates: start: 1991, end: 200910
  6. HUMALOG [Suspect]
     Active Substance: INSULIN LISPRO
     Indication: DIABETES MELLITUS
     Dosage: UNK, AS NEEDED
     Dates: start: 200910
  7. HUMALOG [Suspect]
     Active Substance: INSULIN LISPRO
     Dosage: 7 U, DAILY (1/D)
     Route: 058
     Dates: start: 1991, end: 200910
  8. LANTUS [Concomitant]
     Active Substance: INSULIN GLARGINE
     Dosage: 26 U, UNK

REACTIONS (20)
  - Confusional state [Unknown]
  - Hypertension [Recovering/Resolving]
  - Feeling cold [Recovering/Resolving]
  - Foreign body sensation in eyes [Recovered/Resolved]
  - Malaise [Recovering/Resolving]
  - Chills [Recovering/Resolving]
  - Headache [Recovering/Resolving]
  - Kidney infection [Recovering/Resolving]
  - Nervousness [Recovering/Resolving]
  - Pain [Recovering/Resolving]
  - Hyperglycaemia [Unknown]
  - Nervousness [Recovered/Resolved]
  - Hypersensitivity [Recovering/Resolving]
  - Blood glucose decreased [Recovered/Resolved]
  - Blood glucose decreased [Recovered/Resolved]
  - Blood glucose decreased [Recovered/Resolved]
  - Blood glucose increased [Not Recovered/Not Resolved]
  - Dysarthria [Recovered/Resolved]
  - Anger [Unknown]
  - Stress [Recovered/Resolved]

NARRATIVE: CASE EVENT DATE: 2005
